FAERS Safety Report 8820728 (Version 2)
Quarter: 2012Q4

REPORT INFORMATION
  Report Type: 
  Country: JP (occurrence: JP)
  Receive Date: 20121002
  Receipt Date: 20121011
  Transmission Date: 20130627
  Serious: Yes (Other)
  Sender: FDA-Public Use
  Company Number: JP-PFIZER INC-2012242011

PATIENT
  Sex: Female

DRUGS (3)
  1. ALDACTONE A [Suspect]
     Route: 048
  2. TAKEPRON [Suspect]
     Route: 048
  3. LOXONIN [Suspect]
     Route: 048

REACTIONS (1)
  - Colitis microscopic [Unknown]
